FAERS Safety Report 13495400 (Version 1)
Quarter: 2017Q2

REPORT INFORMATION
  Report Type: Spontaneous
  Country: US (occurrence: US)
  Receive Date: 20170427
  Receipt Date: 20170427
  Transmission Date: 20170830
  Serious: Yes (Other)
  Sender: FDA-Public Use
  Company Number: None

PATIENT
  Age: 64 Year
  Sex: Female

DRUGS (3)
  1. TIMOLOL. [Concomitant]
     Active Substance: TIMOLOL
  2. AZOPT [Suspect]
     Active Substance: BRINZOLAMIDE
     Indication: GLAUCOMA
     Route: 047
  3. LATANOPROST. [Concomitant]
     Active Substance: LATANOPROST

REACTIONS (4)
  - Discomfort [None]
  - Eye irritation [None]
  - Ocular discomfort [None]
  - Liquid product physical issue [None]

NARRATIVE: CASE EVENT DATE: 20170422
